FAERS Safety Report 5578709-6 (Version None)
Quarter: 2008Q1

REPORT INFORMATION
  Report Type: 
  Country: None (occurrence: None)
  Receive Date: 20080102
  Receipt Date: 20071221
  Transmission Date: 20080703
  Serious: Yes (Other)
  Sender: FDA-Public Use
  Company Number: FR-BRISTOL-MYERS SQUIBB COMPANY-14026975

PATIENT
  Age: 58 Year
  Sex: Male

DRUGS (2)
  1. METFORMIN HCL [Suspect]
     Indication: DIABETES MELLITUS
     Dosage: TOTAL DOSE OF 2550 MG/DAY.
     Route: 048
     Dates: start: 20070713, end: 20071012
  2. TERCIAN [Concomitant]
     Indication: SLEEP DISORDER
     Dosage: 1 DOSAGE FORM =0.5 TABLETS
     Route: 048
     Dates: start: 20070713

REACTIONS (1)
  - TRANSAMINASES INCREASED [None]
